FAERS Safety Report 4728321-3 (Version None)
Quarter: 2005Q3

REPORT INFORMATION
  Report Type: 
  Country: None (occurrence: None)
  Receive Date: 20050727
  Receipt Date: 20050713
  Transmission Date: 20060218
  Serious: Yes (Other)
  Sender: FDA-Public Use
  Company Number: 2005RR-00586

PATIENT
  Age: 35 Year
  Sex: Female

DRUGS (3)
  1. ZANOCIN TABLET 100MG (OFLOXACIN) TABLET, 100MG [Suspect]
     Indication: URINARY TRACT INFECTION
     Dosage: 100 MG, QD, ORAL
     Route: 048
  2. ALGIFEN [Concomitant]
  3. DROPS [Concomitant]

REACTIONS (4)
  - DYSPNOEA [None]
  - RASH [None]
  - REFUSAL OF TREATMENT BY PATIENT [None]
  - URTICARIA [None]
